FAERS Safety Report 15585986 (Version 1)
Quarter: 2018Q4

REPORT INFORMATION
  Report Type: Spontaneous
  Country: US (occurrence: US)
  Receive Date: 20181105
  Receipt Date: 20181105
  Transmission Date: 20190205
  Serious: No
  Sender: FDA-Public Use
  Company Number: US-HORIZON-PEN-1189-2018

PATIENT
  Age: 57 Year
  Sex: Male

DRUGS (1)
  1. PENNSAID [Suspect]
     Active Substance: DICLOFENAC SODIUM
     Indication: PAIN
     Dosage: 2 PUMPS (40 MG) TOPICALLY TO AFFECTED AREA(S) BID
     Route: 061

REACTIONS (1)
  - Drug ineffective [Not Recovered/Not Resolved]
